FAERS Safety Report 13102540 (Version 3)
Quarter: 2025Q2

REPORT INFORMATION
  Report Type: Report from Study
  Country: US (occurrence: US)
  Receive Date: 20170110
  Receipt Date: 20250515
  Transmission Date: 20250716
  Serious: Yes (Other)
  Sender: TAKEDA
  Company Number: US-BAXALTA-2017BLT000024

PATIENT
  Age: 32 Year
  Sex: Female

DRUGS (2)
  1. HUMAN IMMUNOGLOBULIN G [Suspect]
     Active Substance: HUMAN IMMUNOGLOBULIN G
     Indication: Immunodeficiency common variable
     Dosage: 11 GRAM, 1/WEEK
  2. HYQVIA [Suspect]
     Active Substance: HUMAN IMMUNOGLOBULIN G\HYALURONIDASE (HUMAN RECOMBINANT)
     Indication: Product used for unknown indication
     Dosage: 32.5 GRAM, Q4WEEKS
     Dates: start: 201605

REACTIONS (6)
  - Abortion spontaneous [Recovered/Resolved]
  - COVID-19 [Unknown]
  - Immunoglobulins decreased [Unknown]
  - Hyperhidrosis [Unknown]
  - Pregnancy [Recovered/Resolved]
  - Infertility female [Not Recovered/Not Resolved]

NARRATIVE: CASE EVENT DATE: 20160501
